FAERS Safety Report 5129719-4 (Version None)
Quarter: 2006Q4

REPORT INFORMATION
  Report Type: 
  Country: None (occurrence: None)
  Receive Date: 20061018
  Receipt Date: 20061009
  Transmission Date: 20070319
  Serious: Yes (Hospitalization)
  Sender: FDA-Public Use
  Company Number: US-ROCHE-466812

PATIENT
  Age: 70 Year
  Sex: Male

DRUGS (1)
  1. XELODA [Suspect]
     Indication: COLON CANCER
     Route: 048
     Dates: start: 20060920

REACTIONS (4)
  - DEHYDRATION [None]
  - DIARRHOEA [None]
  - VOMITING [None]
  - WEIGHT DECREASED [None]
